FAERS Safety Report 8124822-9 (Version None)
Quarter: 2012Q1

REPORT INFORMATION
  Report Type: 
  Country: None (occurrence: None)
  Receive Date: 20120209
  Receipt Date: 20120201
  Transmission Date: 20120608
  Serious: Yes (Death)
  Sender: FDA-Public Use
  Company Number: US-BAXTER-2012BH002517

PATIENT
  Age: 49 Year
  Sex: Male

DRUGS (1)
  1. RECOMBINATE [Suspect]
     Indication: PRODUCT USED FOR UNKNOWN INDICATION
     Route: 065

REACTIONS (2)
  - ORGAN FAILURE [None]
  - SEPTIC SHOCK [None]
